FAERS Safety Report 7740738-1 (Version None)
Quarter: 2011Q3

REPORT INFORMATION
  Report Type: 
  Country: None (occurrence: None)
  Receive Date: 20110909
  Receipt Date: 20110908
  Transmission Date: 20111222
  Serious: Yes (Hospitalization, Other)
  Sender: FDA-Public Use
  Company Number: US-PFIZER INC-2011150123

PATIENT
  Sex: Female
  Weight: 78 kg

DRUGS (3)
  1. CHANTIX [Suspect]
     Indication: SMOKING CESSATION THERAPY
     Dosage: 0.5 MG, 1X/DAY
     Route: 048
     Dates: start: 20110301, end: 20110101
  2. CHANTIX [Suspect]
     Dosage: 1 MG, 2X/DAY
     Route: 048
     Dates: start: 20110101, end: 20110406
  3. CHANTIX [Suspect]
     Dosage: UNK
     Route: 048
     Dates: start: 20110401

REACTIONS (7)
  - HEART RATE DECREASED [None]
  - HYPOXIA [None]
  - MYOCARDIAL INFARCTION [None]
  - OXYGEN SATURATION DECREASED [None]
  - DYSPNOEA [None]
  - BLOOD PRESSURE DECREASED [None]
  - MALAISE [None]
